FAERS Safety Report 17412927 (Version 1)
Quarter: 2020Q1

REPORT INFORMATION
  Report Type: Spontaneous
  Country: US (occurrence: US)
  Receive Date: 20200212
  Receipt Date: 20200212
  Transmission Date: 20200409
  Serious: No
  Sender: FDA-Public Use
  Company Number: None

PATIENT
  Age: 69 Year
  Sex: Female

DRUGS (8)
  1. ALPRAZOLAM 0.5 MG [Concomitant]
     Active Substance: ALPRAZOLAM
     Dates: start: 20191213
  2. ESCITALOPRAM [Concomitant]
     Active Substance: ESCITALOPRAM OXALATE
     Dates: start: 20191113
  3. OMEPRAZOLE 20MG [Concomitant]
     Active Substance: OMEPRAZOLE
     Dates: start: 20191111
  4. COLESTIPOL 1GM [Concomitant]
     Active Substance: COLESTIPOL
     Dates: start: 20180118
  5. ESCITALOPRAM 10MG [Concomitant]
     Active Substance: ESCITALOPRAM OXALATE
     Dates: start: 20200210
  6. IMATINIB. [Suspect]
     Active Substance: IMATINIB MESYLATE
     Indication: GASTRIC CANCER
     Route: 048
     Dates: start: 20190524
  7. BUDESONIDE 3MG DR [Concomitant]
     Dates: start: 20180118
  8. OMPERAZOLE 20MG [Concomitant]
     Dates: start: 20200210

REACTIONS (2)
  - Surgery [None]
  - Therapy cessation [None]
